FAERS Safety Report 23429238 (Version 3)
Quarter: 2024Q2

REPORT INFORMATION
  Report Type: Spontaneous
  Country: US (occurrence: US)
  Receive Date: 20240122
  Receipt Date: 20240409
  Transmission Date: 20240716
  Serious: No
  Sender: FDA-Public Use
  Company Number: US-SA-SAC20240118000642

PATIENT
  Sex: Male

DRUGS (3)
  1. DUPIXENT [Suspect]
     Active Substance: DUPILUMAB
     Indication: Dermatitis atopic
     Dosage: 300 MG, QOW
     Route: 058
     Dates: start: 202310
  2. BUDESONIDE [Suspect]
     Active Substance: BUDESONIDE
     Dosage: UNK
  3. METOPROLOL [Concomitant]
     Active Substance: METOPROLOL

REACTIONS (4)
  - Infection [Unknown]
  - Drug hypersensitivity [Unknown]
  - Rash [Unknown]
  - Heart rate increased [Unknown]
